FAERS Safety Report 19459224 (Version 1)
Quarter: 2021Q2

REPORT INFORMATION
  Report Type: Spontaneous
  Country: US (occurrence: US)
  Receive Date: 20210625
  Receipt Date: 20210625
  Transmission Date: 20210717
  Serious: No
  Sender: FDA-Public Use
  Company Number: None

PATIENT
  Age: 49 Year
  Sex: Female
  Weight: 75 kg

DRUGS (5)
  1. DEXAMETHASONE 4MG IV [Concomitant]
     Dates: start: 20210527
  2. SODIUM CHLORIDE 0.9 % 1L [Concomitant]
     Dates: start: 20210527
  3. ONDASETRON 4MG [Concomitant]
     Active Substance: ONDANSETRON
     Dates: start: 20210527
  4. GAMUNEX?C [Suspect]
     Active Substance: HUMAN IMMUNOGLOBULIN G
     Indication: CHRONIC INFLAMMATORY DEMYELINATING POLYRADICULONEUROPATHY
     Dosage: ?          OTHER FREQUENCY:DAILY FOR 4 DAYS;?
     Route: 041
     Dates: start: 20210526, end: 20210624
  5. PEPCID 20MG [Concomitant]
     Dates: start: 20210527

REACTIONS (2)
  - Rash [None]
  - Vasculitis [None]

NARRATIVE: CASE EVENT DATE: 20210624
